FAERS Safety Report 24995230 (Version 1)
Quarter: 2025Q1

REPORT INFORMATION
  Report Type: Spontaneous
  Country: US (occurrence: None)
  Receive Date: 20250219
  Receipt Date: 20250219
  Transmission Date: 20250409
  Serious: No
  Sender: FDA-CTU
  Company Number: None

PATIENT
  Age: 52 Year
  Sex: Female
  Weight: 51.75 kg

DRUGS (1)
  1. RETATRUTIDE [Suspect]
     Active Substance: RETATRUTIDE
     Indication: Weight decreased

REACTIONS (1)
  - Off label use [None]

NARRATIVE: CASE EVENT DATE: 20250205
